FAERS Safety Report 5392908-8 (Version None)
Quarter: 2007Q3

REPORT INFORMATION
  Report Type: 
  Country: None (occurrence: None)
  Receive Date: 20070721
  Receipt Date: 20070710
  Transmission Date: 20080115
  Serious: Yes (Other)
  Sender: FDA-Public Use
  Company Number: US-PFIZER INC-2007058372

PATIENT
  Sex: Male

DRUGS (3)
  1. LIPITOR [Suspect]
     Indication: BLOOD CHOLESTEROL INCREASED
  2. PREDNISONE [Suspect]
     Indication: IMMUNE SYSTEM DISORDER
  3. LISINOPRIL [Concomitant]

REACTIONS (4)
  - IMMUNE SYSTEM DISORDER [None]
  - MUSCLE DISORDER [None]
  - MYALGIA [None]
  - WEIGHT INCREASED [None]
